FAERS Safety Report 16723066 (Version 3)
Quarter: 2019Q3

REPORT INFORMATION
  Report Type: Report from Study
  Country: US (occurrence: US)
  Receive Date: 20190821
  Receipt Date: 20190926
  Transmission Date: 20191005
  Serious: Yes (Other)
  Sender: FDA-Public Use
  Company Number: US-BIOGEN-2019BI00776696

PATIENT
  Sex: Male

DRUGS (2)
  1. TECFIDERA [Suspect]
     Active Substance: DIMETHYL FUMARATE
     Indication: MULTIPLE SCLEROSIS
     Dosage: STARTING DOSE
     Route: 048
  2. TECFIDERA [Suspect]
     Active Substance: DIMETHYL FUMARATE
     Dosage: MAINTENANCE DOSE
     Route: 048

REACTIONS (7)
  - Blindness transient [Not Recovered/Not Resolved]
  - Fatigue [Recovered/Resolved with Sequelae]
  - Product dose omission [Unknown]
  - Chromaturia [Not Recovered/Not Resolved]
  - Headache [Unknown]
  - Eye pain [Recovered/Resolved with Sequelae]
  - Back pain [Recovered/Resolved with Sequelae]
